FAERS Safety Report 5083543-X (Version None)
Quarter: 2006Q3

REPORT INFORMATION
  Report Type: 
  Country: None (occurrence: None)
  Receive Date: 20060814
  Receipt Date: 20060801
  Transmission Date: 20061208
  Serious: Yes (Death)
  Sender: FDA-Public Use
  Company Number: 2005071775

PATIENT
  Sex: Female

DRUGS (4)
  1. PREDNISOLONE [Suspect]
     Indication: ILL-DEFINED DISORDER
  2. ATROVENT [Suspect]
     Indication: ILL-DEFINED DISORDER
     Dosage: 20 MCG, INHALATION
     Route: 055
  3. SALBUTAMOL (SALBUTAMOL) [Suspect]
     Indication: ILL-DEFINED DISORDER
     Dosage: INHALATION
     Route: 055
  4. FOSAMAX [Suspect]
     Indication: ILL-DEFINED DISORDER

REACTIONS (3)
  - BRONCHITIS ACUTE [None]
  - CARDIAC FAILURE [None]
  - INFECTIVE EXACERBATION OF CHRONIC OBSTRUCTIVE AIRWAYS DISEASE [None]
